FAERS Safety Report 13348901 (Version 1)
Quarter: 2017Q1

REPORT INFORMATION
  Report Type: Spontaneous
  Country: CZ (occurrence: CZ)
  Receive Date: 20170320
  Receipt Date: 20170320
  Transmission Date: 20170428
  Serious: Yes (Hospitalization, Other)
  Sender: FDA-Public Use
  Company Number: CZ-ROCHE-1907228

PATIENT
  Age: 71 Year
  Sex: Male
  Weight: 106 kg

DRUGS (11)
  1. ATORIS [Concomitant]
     Active Substance: ATORVASTATIN CALCIUM
     Route: 048
  2. LANZUL [Concomitant]
     Active Substance: LANSOPRAZOLE
     Route: 048
  3. BETALOC SR [Concomitant]
     Route: 048
  4. SIOFOR [Concomitant]
     Active Substance: METFORMIN HYDROCHLORIDE
     Route: 048
  5. ANOPYRIN [Concomitant]
     Active Substance: ASPIRIN
     Route: 048
  6. MONO MACK DEPOT [Concomitant]
     Active Substance: ISOSORBIDE MONONITRATE
     Route: 048
  7. KALIUM CHLORATUM BIOMEDICA [Concomitant]
     Route: 048
  8. TRIPLIXAM [Concomitant]
     Active Substance: AMLODIPINE BESYLATE\INDAPAMIDE\PERINDOPRIL ARGININE
     Route: 048
  9. ZELBORAF [Suspect]
     Active Substance: VEMURAFENIB
     Indication: MALIGNANT MELANOMA
     Route: 048
     Dates: start: 20160303, end: 20170114
  10. PROTEVASC [Concomitant]
     Active Substance: TRIMETAZIDINE DIHYDROCHLORIDE
     Route: 048
  11. PURINOL (CZECH REPUBLIC) [Concomitant]
     Route: 048

REACTIONS (5)
  - Pulmonary sepsis [Recovered/Resolved]
  - Productive cough [Recovered/Resolved]
  - Dizziness [Recovered/Resolved]
  - Breast pain [Recovered/Resolved]
  - Pyrexia [Recovered/Resolved]

NARRATIVE: CASE EVENT DATE: 20170114
